FAERS Safety Report 6237900-6 (Version None)
Quarter: 2009Q2

REPORT INFORMATION
  Report Type: 
  Country: None (occurrence: None)
  Receive Date: 20090620
  Receipt Date: 20090608
  Transmission Date: 20091009
  Serious: Yes (Hospitalization)
  Sender: FDA-Public Use
  Company Number: CH-MYLANLABS-2009S1010181

PATIENT
  Age: 36 Year
  Sex: Male

DRUGS (9)
  1. KALETRA                            /01506501/ [Suspect]
     Indication: HIV INFECTION
  2. LAMIVUDINE [Suspect]
     Indication: HIV INFECTION
  3. ZIDOVUDINE [Suspect]
     Indication: HIV INFECTION
  4. NEVIRAPINE [Suspect]
     Indication: HIV INFECTION
  5. COTRIMOXAZOLE [Concomitant]
     Indication: PNEUMOCYSTIS JIROVECI INFECTION
  6. ISONIAZID [Concomitant]
     Indication: TUBERCULOSIS
  7. RIFAMPICIN [Concomitant]
     Indication: TUBERCULOSIS
  8. ETHAMBUTOL HCL [Concomitant]
     Indication: TUBERCULOSIS
  9. PYRAZINAMIDE [Concomitant]
     Indication: TUBERCULOSIS

REACTIONS (5)
  - IMMUNE RECONSTITUTION SYNDROME [None]
  - PNEUMOCYSTIS JIROVECI INFECTION [None]
  - SPLENIC RUPTURE [None]
  - SPLENOMEGALY [None]
  - TUBERCULOSIS [None]
